FAERS Safety Report 5366899-X (Version None)
Quarter: 2007Q2

REPORT INFORMATION
  Report Type: 
  Country: None (occurrence: None)
  Receive Date: 20070622
  Receipt Date: 20070215
  Transmission Date: 20071010
  Serious: No
  Sender: FDA-Public Use
  Company Number: US-ASTRAZENECA-2007UW03015

PATIENT
  Sex: Male

DRUGS (1)
  1. RHINOCORT [Suspect]
     Dosage: 120 METER SPRAY UNIT
     Route: 045

REACTIONS (2)
  - DEVICE MALFUNCTION [None]
  - MALAISE [None]
